FAERS Safety Report 9698287 (Version 1)
Quarter: 2013Q4

REPORT INFORMATION
  Report Type: Spontaneous
  Country: US (occurrence: None)
  Receive Date: 20131031
  Receipt Date: 20131031
  Transmission Date: 20140711
  Serious: Yes (Hospitalization)
  Sender: FDA-Public Use
  Company Number: 2012031136

PATIENT
  Sex: Male
  Weight: 85.28 kg

DRUGS (15)
  1. HIZENTRA [Suspect]
     Indication: IMMUNODEFICIENCY COMMON VARIABLE
     Dosage: (??-SEP-2011 SUBCUTANEOUS),
     Dates: start: 20120114, end: 20120114
  2. PROSCAR [Concomitant]
  3. REFRESH TEARS (CARMELLOSE SODIUM) [Concomitant]
  4. TYLENOL (PARACETAMOL) [Concomitant]
  5. METOPROLOL SUCC (METOPROLOL SUCCINATE) [Concomitant]
  6. PRILOSEC [Concomitant]
  7. LEVOTHYROXINE (LEVOTHYROXINE) [Concomitant]
  8. CARTIA (ACETYSALICYLIC  ACID) [Concomitant]
  9. SPIRIVA (TIOTROPIUM BROMIDE) (TIOTROPIUM BROMIDE) [Concomitant]
  10. DIPHENHYDRAMINE (DIPHENHYDRAMINE) [Concomitant]
  11. EPI-PEN (EPINEPHRINE) [Concomitant]
  12. METFORMIN (METFORMIN) [Concomitant]
  13. METOPROLOL (METOPROLOL) [Concomitant]
  14. FLOVENT (FLUTICASONE PROPRIONATE) [Concomitant]
  15. DOXYCYCLINE (DOXYCYCLINE) [Concomitant]

REACTIONS (2)
  - Weight decreased [None]
  - Injection site swelling [None]
